FAERS Safety Report 24821810 (Version 2)
Quarter: 2025Q1

REPORT INFORMATION
  Report Type: Spontaneous
  Country: US (occurrence: US)
  Receive Date: 20250108
  Receipt Date: 20250115
  Transmission Date: 20250409
  Serious: No
  Sender: SANOFI AVENTIS
  Company Number: US-SA-2025SA006128

PATIENT
  Age: 63 Year
  Sex: Female
  Weight: 104.55 kg

DRUGS (29)
  1. DUPIXENT [Suspect]
     Active Substance: DUPILUMAB
     Indication: Neurodermatitis
     Route: 058
     Dates: start: 202412, end: 202412
  2. DUPIXENT [Suspect]
     Active Substance: DUPILUMAB
     Dosage: 300 MG, QOW
     Route: 058
  3. EPLERENONE [Concomitant]
     Active Substance: EPLERENONE
  4. IRBESARTAN [Concomitant]
     Active Substance: IRBESARTAN
  5. AMLODIPINE BESYLATE [Concomitant]
     Active Substance: AMLODIPINE BESYLATE
  6. SYNTHROID [Concomitant]
     Active Substance: LEVOTHYROXINE SODIUM
  7. METFORMIN HYDROCHLORIDE [Concomitant]
     Active Substance: METFORMIN HYDROCHLORIDE
  8. DIPHENHYDRAMINE HYDROCHLORIDE [Concomitant]
     Active Substance: DIPHENHYDRAMINE HYDROCHLORIDE
  9. CLOBETASOL PROPIONATE [Concomitant]
     Active Substance: CLOBETASOL PROPIONATE
  10. TYLENOL [Concomitant]
     Active Substance: ACETAMINOPHEN
  11. ALPRAZOLAM [Concomitant]
     Active Substance: ALPRAZOLAM
  12. ASPIRIN [Concomitant]
     Active Substance: ASPIRIN
  13. OPZELURA [Concomitant]
     Active Substance: RUXOLITINIB PHOSPHATE
  14. GLIPIZIDE [Concomitant]
     Active Substance: GLIPIZIDE
  15. DEXAMETHASONE [Concomitant]
     Active Substance: DEXAMETHASONE
  16. Comirnaty [Concomitant]
  17. JARDIANCE [Concomitant]
     Active Substance: EMPAGLIFLOZIN
  18. OXCARBAZEPINE [Concomitant]
     Active Substance: OXCARBAZEPINE
  19. GABAPENTIN [Concomitant]
     Active Substance: GABAPENTIN
  20. PREDNISONE [Concomitant]
     Active Substance: PREDNISONE
  21. AIRSUPRA [BUDESONIDE;SALBUTAMOL] [Concomitant]
  22. LABETALOL HYDROCHLORIDE [Concomitant]
     Active Substance: LABETALOL HYDROCHLORIDE
  23. TRIAMCINOLONE ACETONIDE [Concomitant]
     Active Substance: TRIAMCINOLONE ACETONIDE
  24. DESONIDE [Concomitant]
     Active Substance: DESONIDE
  25. VITAMIN D2 [Concomitant]
     Active Substance: ERGOCALCIFEROL
  26. MAGNESIUM [Concomitant]
     Active Substance: MAGNESIUM
  27. COQ10 [CONJUGATED LINOLEIC ACID;LINUM USITATISSIMUM SEED OIL;UBIDECARE [Concomitant]
  28. OLMESARTAN MEDOXOMIL [Concomitant]
     Active Substance: OLMESARTAN MEDOXOMIL
  29. FLUCELVAX NOS [Concomitant]
     Active Substance: INFLUENZA A VIRUS A/BRISBANE/10/2010 (H1N1) ANTIGEN (MDCK CELL DERIVED, PROPIOLACTONE INACTIVATED)\I

REACTIONS (5)
  - Rash macular [Unknown]
  - Initial insomnia [Unknown]
  - Skin haemorrhage [Unknown]
  - Pruritus [Not Recovered/Not Resolved]
  - Urticaria [Not Recovered/Not Resolved]

NARRATIVE: CASE EVENT DATE: 20241201
